APPROVED DRUG PRODUCT: NICOTROL
Active Ingredient: NICOTINE
Strength: 15MG/16HR
Dosage Form/Route: FILM, EXTENDED RELEASE;TRANSDERMAL
Application: N020536 | Product #001
Applicant: MCNEIL CONSUMER HEALTHCARE
Approved: Jul 3, 1996 | RLD: No | RS: No | Type: DISCN